FAERS Safety Report 13043163 (Version 1)
Quarter: 2016Q4

REPORT INFORMATION
  Report Type: Spontaneous
  Country: BR (occurrence: BR)
  Receive Date: 20161219
  Receipt Date: 20161219
  Transmission Date: 20170207
  Serious: Yes (Hospitalization, Other)
  Sender: FDA-Public Use
  Company Number: PHHY2016BR171074

PATIENT
  Age: 90 Year
  Sex: Female
  Weight: 70 kg

DRUGS (2)
  1. CHLORTALIDONE [Suspect]
     Active Substance: CHLORTHALIDONE
     Indication: HYPERTENSION
     Dosage: UNK
     Route: 065
  2. HIGROTON [Suspect]
     Active Substance: CHLORTHALIDONE
     Indication: HYPERTENSION
     Dosage: 1 DF, QD (1 TABLET IN THE AFTERNOON)
     Route: 048

REACTIONS (3)
  - Transient ischaemic attack [Unknown]
  - Drug ineffective [Unknown]
  - Blood pressure increased [Unknown]
